FAERS Safety Report 7917762-9 (Version None)
Quarter: 2011Q4

REPORT INFORMATION
  Report Type: 
  Country: None (occurrence: None)
  Receive Date: 20111116
  Receipt Date: 20111107
  Transmission Date: 20120403
  Serious: Yes (Hospitalization, Other)
  Sender: FDA-Public Use
  Company Number: US-SHIRE-ALL1-2011-03699

PATIENT
  Sex: Male

DRUGS (1)
  1. METADATE CD [Suspect]
     Indication: ATTENTION DEFICIT/HYPERACTIVITY DISORDER
     Dosage: 40 MG, 2X/DAY:BID
     Route: 048
     Dates: start: 20110602, end: 20110824

REACTIONS (11)
  - MANIA [None]
  - ENERGY INCREASED [None]
  - EUPHORIC MOOD [None]
  - INSOMNIA [None]
  - DELUSION [None]
  - OVERDOSE [None]
  - CONTUSION [None]
  - HEAD INJURY [None]
  - OFF LABEL USE [None]
  - SUICIDAL IDEATION [None]
  - INAPPROPRIATE SCHEDULE OF DRUG ADMINISTRATION [None]
